FAERS Safety Report 10364600 (Version 1)
Quarter: 2014Q3

REPORT INFORMATION
  Report Type: Spontaneous
  Country: NL (occurrence: NL)
  Receive Date: 20140806
  Receipt Date: 20140806
  Transmission Date: 20150326
  Serious: Yes (Life-Threatening)
  Sender: FDA-Public Use
  Company Number: NL-RANBAXY-2014R1-84026

PATIENT
  Age: 49 Year
  Sex: Female

DRUGS (5)
  1. INSULINE ASPART INJVLST 100E/ML [Concomitant]
     Indication: PRODUCT USED FOR UNKNOWN INDICATION
     Dosage: TER INJECTIE VIA POMP
     Route: 058
     Dates: start: 20010601
  2. ATORAB 80MG FILMOMHULDE TABLETTEN [Suspect]
     Active Substance: ATORVASTATIN CALCIUM
     Indication: HYPERCHOLESTEROLAEMIA
     Dosage: DOSERING NIET INGEVULD
     Route: 048
     Dates: start: 20120328
  3. RAMIPRIL. [Suspect]
     Active Substance: RAMIPRIL
     Indication: HYPERTENSION
     Dosage: 1 KEER PER DAG 1 STUK(S)
     Route: 048
     Dates: start: 20120629, end: 20140716
  4. ETHINYLESTRADIOL/DESOGESTREL TABLET 30/150UG [Concomitant]
     Indication: PRODUCT USED FOR UNKNOWN INDICATION
     Dosage: 1 DF CYCLICAL, 1 KEER PER DAG 1 STUK(S)
     Route: 048
     Dates: start: 19970319
  5. EZETROL TABLET 10MG [Concomitant]
     Indication: PRODUCT USED FOR UNKNOWN INDICATION
     Dosage: 1 KEER PER DAG 1 STUK(S)
     Route: 048
     Dates: start: 20040917

REACTIONS (1)
  - Swollen tongue [Recovered/Resolved]

NARRATIVE: CASE EVENT DATE: 201407
